FAERS Safety Report 8324897-8 (Version None)
Quarter: 2012Q2

REPORT INFORMATION
  Report Type: 
  Country: None (occurrence: None)
  Receive Date: 20120501
  Receipt Date: 20120420
  Transmission Date: 20120825
  Serious: Yes (Hospitalization, Other)
  Sender: FDA-Public Use
  Company Number: US-GENZYME-THYM-1002575

PATIENT
  Sex: Female
  Weight: 96.6 kg

DRUGS (21)
  1. PROGRAF [Concomitant]
     Indication: PROPHYLAXIS AGAINST TRANSPLANT REJECTION
     Dosage: 4 MG, QD
     Dates: start: 20110801
  2. SYNTHROID [Concomitant]
     Indication: HYPOTHYROIDISM
     Dosage: 200 MCG, QD
     Route: 065
     Dates: start: 20110711
  3. AZITHROMYCIN [Concomitant]
     Indication: PNEUMONIA
  4. PREDNISONE TAB [Concomitant]
     Dosage: 5 MG, QD
     Route: 065
     Dates: start: 20120307
  5. ASPIRIN [Concomitant]
     Indication: PRODUCT USED FOR UNKNOWN INDICATION
     Dosage: 81 MG, UNK
  6. OMEPRAZOLE [Concomitant]
     Indication: PRODUCT USED FOR UNKNOWN INDICATION
     Dosage: UNK
  7. VELCADE [Concomitant]
     Indication: PROPHYLAXIS AGAINST TRANSPLANT REJECTION
     Dosage: 2.5 MG, UNK
     Dates: start: 20110510, end: 20110520
  8. PREDNISONE TAB [Concomitant]
     Indication: PROPHYLAXIS AGAINST TRANSPLANT REJECTION
     Dosage: 5 MG, QD
     Dates: start: 20110829
  9. PROGRAF [Concomitant]
     Dosage: 2 MG, QD
     Route: 065
     Dates: start: 20111228
  10. LEVAQUIN [Concomitant]
     Indication: PRODUCT USED FOR UNKNOWN INDICATION
     Dosage: 500 MG, QD
  11. BORTEZOMIB [Concomitant]
     Indication: RENAL TRANSPLANT
     Dosage: UNK
     Route: 065
     Dates: start: 20110510, end: 20110520
  12. THYMOGLOBULIN [Suspect]
     Indication: RENAL TRANSPLANT
     Dosage: 125 MG, UNK
     Dates: start: 20110510, end: 20110518
  13. VALCYTE [Concomitant]
     Indication: ANTIVIRAL PROPHYLAXIS
     Dosage: 450 MG, QD
     Dates: start: 20111129
  14. BACTRIM [Concomitant]
     Indication: ANTIBIOTIC PROPHYLAXIS
     Dosage: 1 DF, QD
     Route: 048
     Dates: start: 20110510
  15. XANAX [Concomitant]
     Indication: PRODUCT USED FOR UNKNOWN INDICATION
     Dosage: 1 MG, BID
  16. MYCOPHENOLATE MOFETIL (CELLCEPT) [Concomitant]
     Indication: PROPHYLAXIS AGAINST TRANSPLANT REJECTION
     Dosage: 1500 MG, QD
     Dates: start: 20110907
  17. MYCOPHENOLATE MOFETIL (CELLCEPT) [Concomitant]
     Dosage: 1000 MG, QD
     Route: 065
     Dates: start: 20120307
  18. METOPROLOL TARTRATE [Concomitant]
     Indication: HYPERTENSION
     Dosage: 25 MG, BID
     Route: 065
     Dates: start: 20111128
  19. FESULFATE [Concomitant]
     Indication: PRODUCT USED FOR UNKNOWN INDICATION
     Dosage: 325 MG, BID
  20. LANTUS [Concomitant]
     Indication: DIABETES MELLITUS
     Dosage: 30 U, UNK
     Route: 065
     Dates: start: 20110907
  21. NOVOLOG [Concomitant]
     Indication: DIABETES MELLITUS
     Dosage: 4 U, UNK
     Route: 065
     Dates: start: 20090102

REACTIONS (8)
  - GENERALISED OEDEMA [None]
  - PULMONARY HYPERTENSION [None]
  - WEIGHT INCREASED [None]
  - GAIT DISTURBANCE [None]
  - ECHOCARDIOGRAM ABNORMAL [None]
  - PNEUMONIA [None]
  - ASCITES [None]
  - FLUID OVERLOAD [None]
